FAERS Safety Report 6506468-9 (Version None)
Quarter: 2009Q4

REPORT INFORMATION
  Report Type: 
  Country: None (occurrence: None)
  Receive Date: 20091221
  Receipt Date: 20091210
  Transmission Date: 20100525
  Serious: Yes (Hospitalization)
  Sender: FDA-Public Use
  Company Number: US-BIOGENIDEC-2005BI018531

PATIENT
  Age: 57 Year
  Sex: Female
  Weight: 55 kg

DRUGS (2)
  1. AVONEX [Suspect]
     Indication: MULTIPLE SCLEROSIS
     Route: 030
     Dates: start: 20010301, end: 20040901
  2. AVONEX [Suspect]
     Route: 030
     Dates: start: 20040901

REACTIONS (3)
  - OVARIAN CANCER [None]
  - OVARIAN CANCER RECURRENT [None]
  - PRURITUS [None]
